FAERS Safety Report 7938661-2 (Version None)
Quarter: 2011Q4

REPORT INFORMATION
  Report Type: 
  Country: None (occurrence: None)
  Receive Date: 20111123
  Receipt Date: 20111109
  Transmission Date: 20120403
  Serious: Yes (Life-Threatening, Hospitalization, Other)
  Sender: FDA-Public Use
  Company Number: FR-MERCK-1011USA00651

PATIENT
  Age: 45 Year
  Sex: Female

DRUGS (12)
  1. NORVIR [Suspect]
     Indication: HIV INFECTION
     Route: 065
     Dates: start: 20100528, end: 20100601
  2. VIREAD [Suspect]
     Route: 065
     Dates: start: 20100811, end: 20100811
  3. ISENTRESS [Suspect]
     Indication: HIV INFECTION
     Route: 048
     Dates: start: 20100625, end: 20100601
  4. EPIVIR [Suspect]
     Indication: HIV INFECTION
     Route: 048
     Dates: start: 20100625, end: 20100601
  5. PREZISTA [Suspect]
     Route: 065
     Dates: start: 20100528, end: 20100601
  6. ISENTRESS [Suspect]
     Route: 048
     Dates: start: 20100817, end: 20100101
  7. SUSTIVA [Suspect]
     Route: 048
  8. PIASCLEDINE [Concomitant]
     Route: 065
  9. REYATAZ [Suspect]
     Indication: HIV INFECTION
     Route: 048
     Dates: start: 20100819
  10. VIDEX [Suspect]
     Indication: HIV INFECTION
     Route: 048
     Dates: start: 20100625
  11. VIREAD [Suspect]
     Route: 065
     Dates: start: 20100528, end: 20100601
  12. NEVIRAPINE [Suspect]
     Route: 065

REACTIONS (8)
  - ASTHENIA [None]
  - DRUG RESISTANCE [None]
  - ACUTE GENERALISED EXANTHEMATOUS PUSTULOSIS [None]
  - PANCYTOPENIA [None]
  - WEIGHT DECREASED [None]
  - CASTLEMAN'S DISEASE [None]
  - GENERALISED ERYTHEMA [None]
  - ANAPHYLACTIC SHOCK [None]
